FAERS Safety Report 24845681 (Version 2)
Quarter: 2025Q1

REPORT INFORMATION
  Report Type: Spontaneous
  Country: UA (occurrence: UA)
  Receive Date: 20250115
  Receipt Date: 20250123
  Transmission Date: 20250409
  Serious: Yes (Death, Other)
  Sender: ASTELLAS
  Company Number: UA-ASTELLAS-2025-AER-001795

PATIENT
  Age: 78 Year
  Sex: Female

DRUGS (2)
  1. VESICARE [Interacting]
     Active Substance: SOLIFENACIN SUCCINATE
     Indication: Hypertonic bladder
     Dosage: IN THE EVENING
     Route: 065
     Dates: start: 2023
  2. MEMANTINE [Interacting]
     Active Substance: MEMANTINE
     Indication: Dementia
     Route: 065
     Dates: start: 2023, end: 2023

REACTIONS (7)
  - Cardiac failure [Fatal]
  - Cerebrovascular accident [Fatal]
  - Dementia [Recovered/Resolved]
  - Psychotic disorder [Recovered/Resolved]
  - Agitation [Recovered/Resolved]
  - Drug interaction [Unknown]
  - Drug ineffective [Unknown]

NARRATIVE: CASE EVENT DATE: 20230101
